FAERS Safety Report 24635587 (Version 1)
Quarter: 2024Q4

REPORT INFORMATION
  Report Type: Spontaneous
  Country: US (occurrence: US)
  Receive Date: 20241119
  Receipt Date: 20241119
  Transmission Date: 20250114
  Serious: No
  Sender: CATALYST PHARMA
  Company Number: US-CATALYST PHARMACEUTICALS-US-CATA-24-00713

PATIENT
  Sex: Male
  Weight: 33 kg

DRUGS (10)
  1. AGAMREE [Suspect]
     Active Substance: VAMOROLONE
     Indication: Duchenne muscular dystrophy
     Dosage: 4.5 ML ONCE DAILY
     Route: 048
     Dates: start: 20240418, end: 20240715
  2. LISINOPRIL [Concomitant]
     Active Substance: LISINOPRIL
     Indication: Product used for unknown indication
     Dosage: 5 MG DAILY
     Route: 065
  3. VYVANSE [Concomitant]
     Active Substance: LISDEXAMFETAMINE DIMESYLATE
     Indication: Product used for unknown indication
     Dosage: 30 MG DAILY
     Route: 065
  4. CLONIDINE [Concomitant]
     Active Substance: CLONIDINE
     Indication: Product used for unknown indication
     Dosage: ONE AND A HALF TABLET DAILY
     Route: 065
  5. MELATONIN [Concomitant]
     Active Substance: MELATONIN
     Indication: Product used for unknown indication
     Dosage: 3 MG DAILY
     Route: 065
  6. VITAMINS [Concomitant]
     Active Substance: VITAMINS
     Indication: Product used for unknown indication
     Dosage: 1 TABLET DAILY
     Route: 065
  7. MAGNESIUM [Concomitant]
     Active Substance: MAGNESIUM
     Indication: Product used for unknown indication
     Dosage: 100 MG DAILY
     Route: 065
  8. IRON [Concomitant]
     Active Substance: IRON
     Indication: Product used for unknown indication
     Dosage: 325 MG DAILY
     Route: 065
  9. VITAMIN D3 [Concomitant]
     Active Substance: CHOLECALCIFEROL
     Indication: Product used for unknown indication
     Dosage: 2000 UNITS DAILY
     Route: 065
  10. CREATINE [Concomitant]
     Active Substance: CREATINE
     Indication: Product used for unknown indication
     Dosage: 5000 MG DAILY
     Route: 065

REACTIONS (2)
  - Mobility decreased [Unknown]
  - Gait disturbance [Not Recovered/Not Resolved]

NARRATIVE: CASE EVENT DATE: 20240101
